FAERS Safety Report 23555278 (Version 1)
Quarter: 2024Q1

REPORT INFORMATION
  Report Type: Spontaneous
  Country: FR (occurrence: FR)
  Receive Date: 20240222
  Receipt Date: 20240222
  Transmission Date: 20240410
  Serious: Yes (Other)
  Sender: FDA-Public Use
  Company Number: FR-009507513-2402FRA006575

PATIENT
  Age: 66 Year
  Sex: Female
  Weight: 80 kg

DRUGS (15)
  1. KEYTRUDA [Suspect]
     Active Substance: PEMBROLIZUMAB
     Indication: Endometrial cancer
     Dosage: C1J1 200 MG OVER 30 MINUTES
     Route: 042
     Dates: start: 20230929, end: 20230929
  2. KEYTRUDA [Suspect]
     Active Substance: PEMBROLIZUMAB
     Dosage: C1J1 200 MG OVER 30 MINUTES
     Route: 042
     Dates: start: 20231020, end: 20231020
  3. KEYTRUDA [Suspect]
     Active Substance: PEMBROLIZUMAB
     Dosage: C1J1 200 MG OVER 30 MINUTES
     Route: 042
     Dates: start: 20231110, end: 20231110
  4. KEYTRUDA [Suspect]
     Active Substance: PEMBROLIZUMAB
     Dosage: C1J1 200 MG OVER 30 MINUTES
     Route: 042
     Dates: start: 20231201, end: 20231201
  5. KEYTRUDA [Suspect]
     Active Substance: PEMBROLIZUMAB
     Dosage: C1J1 200 MG OVER 30 MINUTES
     Route: 042
     Dates: start: 20231222, end: 20231222
  6. KEYTRUDA [Suspect]
     Active Substance: PEMBROLIZUMAB
     Dosage: C1J1 200 MG OVER 30 MINUTES
     Route: 042
     Dates: start: 20240112, end: 20240112
  7. KEYTRUDA [Suspect]
     Active Substance: PEMBROLIZUMAB
     Dosage: C1J1 200 MG OVER 30 MINUTES
     Route: 042
     Dates: start: 20240202, end: 20240202
  8. LENVATINIB MESYLATE [Suspect]
     Active Substance: LENVATINIB MESYLATE
     Indication: Endometrial cancer
     Dosage: 8 MILLIGRAM, QD
     Route: 048
     Dates: start: 20231030, end: 20231107
  9. LENVATINIB MESYLATE [Suspect]
     Active Substance: LENVATINIB MESYLATE
     Dosage: 10 MG/DAY
     Route: 048
     Dates: start: 20230929, end: 20231017
  10. GLICLAZIDE [Concomitant]
     Active Substance: GLICLAZIDE
     Indication: Type 2 diabetes mellitus
     Route: 048
  11. TOUJEO [Concomitant]
     Active Substance: INSULIN GLARGINE
     Indication: Type 2 diabetes mellitus
     Dosage: 4 TO 6 IU IN THE EVENING
     Route: 058
  12. ACEBUTOLOL HYDROCHLORIDE [Concomitant]
     Active Substance: ACEBUTOLOL HYDROCHLORIDE
     Indication: Hypertension
     Route: 048
  13. METFORMIN HYDROCHLORIDE\VILDAGLIPTIN [Concomitant]
     Active Substance: METFORMIN HYDROCHLORIDE\VILDAGLIPTIN
     Indication: Type 2 diabetes mellitus
     Route: 048
  14. COVERSYL A [Concomitant]
     Indication: Hypertension
     Route: 048
  15. ROSUVASTATIN [Concomitant]
     Active Substance: ROSUVASTATIN
     Indication: Product used for unknown indication
     Route: 048

REACTIONS (1)
  - Thrombocytopenia [Not Recovered/Not Resolved]

NARRATIVE: CASE EVENT DATE: 20231013
